FAERS Safety Report 5966915-8 (Version None)
Quarter: 2008Q4

REPORT INFORMATION
  Report Type: 
  Country: None (occurrence: None)
  Receive Date: 20081125
  Receipt Date: 20081111
  Transmission Date: 20090506
  Serious: Yes (Other)
  Sender: FDA-Public Use
  Company Number: US-ELI_LILLY_AND_COMPANY-US200810004859

PATIENT
  Sex: Female
  Weight: 74.83 kg

DRUGS (3)
  1. FORTEO [Suspect]
     Indication: OSTEOPOROSIS
     Dosage: 20 UG, DAILY (1/D)
     Route: 058
     Dates: start: 20080101, end: 20081014
  2. CALCIUM W/VITAMIN D NOS [Concomitant]
  3. LIPITOR [Concomitant]

REACTIONS (2)
  - ILIAC VEIN OCCLUSION [None]
  - UTERINE LEIOMYOMA [None]
